FAERS Safety Report 7170062-X (Version None)
Quarter: 2010Q4

REPORT INFORMATION
  Report Type: 
  Country: None (occurrence: None)
  Receive Date: 20101217
  Receipt Date: 20101213
  Transmission Date: 20110411
  Serious: Yes (Death, Hospitalization)
  Sender: FDA-Public Use
  Company Number: ZA-PFIZER INC-2010171068

PATIENT
  Age: 62 Year
  Sex: Female

DRUGS (1)
  1. SUTENT [Suspect]
     Dosage: 50 MG, 1X/DAY
     Route: 048
     Dates: start: 20091117, end: 20091121

REACTIONS (1)
  - LOWER RESPIRATORY TRACT INFECTION [None]
